FAERS Safety Report 5248977-9 (Version None)
Quarter: 2007Q1

REPORT INFORMATION
  Report Type: 
  Country: None (occurrence: None)
  Receive Date: 20070228
  Receipt Date: 20060524
  Transmission Date: 20070707
  Serious: No
  Sender: FDA-Public Use
  Company Number: US-GLAXOSMITHKLINE-A0602860A

PATIENT
  Age: 66 Year
  Sex: Female
  Weight: 136.1 kg

DRUGS (25)
  1. VALACYCLOVIR [Suspect]
     Dosage: 1G THREE TIMES PER DAY
     Route: 048
     Dates: start: 20060103, end: 20060104
  2. VALGANCYCLOVIR [Suspect]
     Dosage: 60MGML THREE TIMES PER DAY
     Route: 048
     Dates: start: 20051230, end: 20060104
  3. CIPROFLOXACIN [Concomitant]
     Dosage: 250MG TWICE PER DAY
     Route: 048
     Dates: start: 20060102, end: 20060104
  4. DOCUSATE SODIUM [Concomitant]
     Dosage: 100MG TWICE PER DAY
     Route: 048
     Dates: start: 20051229, end: 20060104
  5. DULOXETINE [Concomitant]
     Dosage: 60MG TWICE PER DAY
     Route: 048
     Dates: start: 20051230, end: 20060104
  6. FAMOTIDINE [Concomitant]
     Dosage: 20MG TWICE PER DAY
     Route: 048
     Dates: start: 20051229, end: 20051231
  7. FOLIC ACID [Concomitant]
     Dosage: 2MG PER DAY
     Route: 048
     Dates: start: 20051230, end: 20060104
  8. FUROSEMIDE [Concomitant]
     Dosage: 20MG TWICE PER DAY
     Route: 048
     Dates: start: 20060101, end: 20060104
  9. GABAPENTIN [Concomitant]
     Dosage: 600MG THREE TIMES PER DAY
     Route: 048
     Dates: start: 20051229, end: 20060104
  10. HEPARIN SODIUM INJECTION [Concomitant]
     Dosage: 5000UNIT TWICE PER DAY
     Route: 058
     Dates: start: 20051229, end: 20060104
  11. VICODIN [Concomitant]
     Dosage: 2TAB FOUR TIMES PER DAY
     Route: 048
     Dates: start: 20051230, end: 20060104
  12. HUMULIN 70/30 [Concomitant]
     Dosage: 6UNIT IN THE MORNING
     Route: 058
     Dates: start: 20051230, end: 20060104
  13. HUMULIN R [Concomitant]
     Route: 058
     Dates: start: 20051230, end: 20060104
  14. HUMULIN R [Concomitant]
     Dosage: 3UNIT IN THE MORNING
     Route: 058
     Dates: start: 20051230, end: 20060104
  15. LISINOPRIL [Concomitant]
     Dosage: 10MG PER DAY
     Route: 048
     Dates: start: 20051230, end: 20051231
  16. LORAZEPAM [Concomitant]
     Dosage: .5MG AS REQUIRED
     Route: 042
     Dates: start: 20051229, end: 20060104
  17. METHYLPREDNISOLONE 16MG TAB [Concomitant]
     Dosage: 5MGML TWICE PER DAY
     Route: 042
     Dates: start: 20051229, end: 20060104
  18. METOCLOPRAMIDE [Concomitant]
     Dosage: 5MGML THREE TIMES PER DAY
     Route: 042
     Dates: start: 20051231, end: 20060104
  19. MULTI-VITAMIN [Concomitant]
     Dosage: 5ML PER DAY
     Route: 048
     Dates: start: 20051230, end: 20060104
  20. OLMESARTAN MEDOXOMIL [Concomitant]
     Dosage: 40MG AT NIGHT
     Route: 048
     Dates: start: 20051229, end: 20060104
  21. PANTOPRAZOLE SODIUM [Concomitant]
     Dosage: 40MG PER DAY
     Route: 048
     Dates: start: 20051231, end: 20060104
  22. PREGABALIN [Concomitant]
     Dosage: 50MG THREE TIMES PER DAY
     Route: 048
     Dates: start: 20051230, end: 20060104
  23. SENNA [Concomitant]
     Dosage: 1TAB AT NIGHT
     Route: 048
     Dates: start: 20051229, end: 20060104
  24. SODIUM CHLORIDE [Concomitant]
     Route: 042
     Dates: start: 20060101, end: 20060102
  25. VALPROATE SODIUM [Concomitant]
     Dosage: 100MGML SINGLE DOSE
     Route: 042
     Dates: start: 20060101, end: 20060102

REACTIONS (2)
  - MEDICATION ERROR [None]
  - WRONG DRUG ADMINISTERED [None]
